FAERS Safety Report 6334831-8 (Version None)
Quarter: 2009Q3

REPORT INFORMATION
  Report Type: 
  Country: None (occurrence: None)
  Receive Date: 20090831
  Receipt Date: 20090826
  Transmission Date: 20100115
  Serious: Yes (Life-Threatening, Hospitalization, Other)
  Sender: FDA-Public Use
  Company Number: ZA-BAYER-200929028GPV

PATIENT
  Age: 66 Year
  Sex: Female

DRUGS (5)
  1. AVELON [Suspect]
     Indication: INFECTION PROPHYLAXIS
     Dosage: TOTAL DAILY DOSE: 400 MG  UNIT DOSE: 400 MG
     Route: 048
     Dates: start: 20090818, end: 20090818
  2. AVELON [Suspect]
     Dosage: TOTAL DAILY DOSE: 400 MG  UNIT DOSE: 400 MG
     Route: 048
     Dates: start: 20090811, end: 20090811
  3. PANTOPRAZOLE SODIUM [Concomitant]
     Route: 065
  4. PREMARIN [Concomitant]
     Route: 065
  5. CELEBREX [Concomitant]
     Route: 065

REACTIONS (7)
  - ACUTE RESPIRATORY DISTRESS SYNDROME [None]
  - ANAPHYLACTIC SHOCK [None]
  - HYPOTENSION [None]
  - PLATELET COUNT DECREASED [None]
  - RASH [None]
  - RASH ERYTHEMATOUS [None]
  - RENAL IMPAIRMENT [None]
